FAERS Safety Report 4639281-8 (Version None)
Quarter: 2005Q2

REPORT INFORMATION
  Report Type: 
  Country: None (occurrence: None)
  Receive Date: 20050418
  Receipt Date: 20050407
  Transmission Date: 20051028
  Serious: Yes (Life-Threatening, Hospitalization)
  Sender: FDA-Public Use
  Company Number: 04P-087-0279711-00

PATIENT
  Age: 56 Year
  Sex: Female

DRUGS (18)
  1. BIAXIN [Suspect]
     Indication: GASTRIC ULCER
     Dosage: SEE IMAGE
     Route: 048
     Dates: start: 20040917, end: 20040924
  2. BIAXIN [Suspect]
     Indication: GASTRIC ULCER HELICOBACTER
     Dosage: SEE IMAGE
     Route: 048
     Dates: start: 20040917, end: 20040924
  3. BIAXIN [Suspect]
     Indication: GASTRIC ULCER
     Dosage: SEE IMAGE
     Route: 048
     Dates: start: 20040924, end: 20040924
  4. BIAXIN [Suspect]
     Indication: GASTRIC ULCER HELICOBACTER
     Dosage: SEE IMAGE
     Route: 048
     Dates: start: 20040924, end: 20040924
  5. LANSOPRAZOLE [Suspect]
     Indication: GASTRIC ULCER
     Dosage: SEE IMAGE
     Route: 048
     Dates: start: 20040917, end: 20040923
  6. LANSOPRAZOLE [Suspect]
     Indication: GASTRIC ULCER HELICOBACTER
     Dosage: SEE IMAGE
     Route: 048
     Dates: start: 20040917, end: 20040923
  7. LANSOPRAZOLE [Suspect]
     Indication: GASTRIC ULCER
     Dosage: SEE IMAGE
     Route: 048
     Dates: start: 20040917, end: 20040924
  8. LANSOPRAZOLE [Suspect]
     Indication: GASTRIC ULCER HELICOBACTER
     Dosage: SEE IMAGE
     Route: 048
     Dates: start: 20040917, end: 20040924
  9. AMOXICILLIN [Suspect]
     Indication: GASTRIC ULCER
     Dosage: SEE IMAGE
     Route: 048
     Dates: start: 20040917, end: 20040924
  10. AMOXICILLIN [Suspect]
     Indication: GASTRIC ULCER HELICOBACTER
     Dosage: SEE IMAGE
     Route: 048
     Dates: start: 20040917, end: 20040924
  11. AMOXICILLIN [Suspect]
     Indication: GASTRIC ULCER
     Dosage: SEE IMAGE
     Route: 048
     Dates: start: 20040924, end: 20040924
  12. AMOXICILLIN [Suspect]
     Indication: GASTRIC ULCER HELICOBACTER
     Dosage: SEE IMAGE
     Route: 048
     Dates: start: 20040924, end: 20040924
  13. PROTECADIN [Suspect]
     Indication: ABDOMINAL PAIN UPPER
     Dosage: PER ORAL
     Route: 048
     Dates: start: 20040911, end: 20040916
  14. REBAMIPIDE [Suspect]
     Indication: ABDOMINAL PAIN UPPER
     Dosage: SEE IMAGE
     Route: 048
     Dates: start: 20040924, end: 20041012
  15. REBAMIPIDE [Suspect]
     Indication: ABDOMINAL PAIN UPPER
     Dosage: SEE IMAGE
     Route: 048
     Dates: start: 20040911, end: 20041016
  16. HAKUBI C [Concomitant]
  17. REPULSE TAF [Concomitant]
  18. OXETHAZAINE [Concomitant]

REACTIONS (2)
  - AGRANULOCYTOSIS [None]
  - THROMBOCYTOPENIA [None]
